FAERS Safety Report 16544029 (Version 1)
Quarter: 2019Q3

REPORT INFORMATION
  Report Type: Spontaneous
  Country: KR (occurrence: KR)
  Receive Date: 20190709
  Receipt Date: 20190709
  Transmission Date: 20191004
  Serious: Yes (Other)
  Sender: FDA-Public Use
  Company Number: KR-SILVERGATE PHARMACEUTICALS, INC.-2019SIL00039

PATIENT
  Age: 73 Year
  Sex: Female

DRUGS (3)
  1. PREDNISOLONE. [Concomitant]
     Active Substance: PREDNISOLONE
     Dosage: 1.25 MG 1X/DAY
     Route: 065
     Dates: end: 2016
  2. PREDNISOLONE. [Concomitant]
     Active Substance: PREDNISOLONE
     Dosage: 5 MG, 1X/DAY
     Route: 065
     Dates: end: 2016
  3. METHOTREXATE. [Suspect]
     Active Substance: METHOTREXATE
     Indication: RHEUMATOID ARTHRITIS
     Dosage: 12.5 MG, 1X/WEEK
     Dates: end: 2016

REACTIONS (6)
  - IIIrd nerve paralysis [Recovered/Resolved]
  - Lymphoma [Recovered/Resolved]
  - VIth nerve paralysis [Recovered/Resolved]
  - Central nervous system vasculitis [Recovered/Resolved]
  - Central nervous system lymphoma [Recovered/Resolved]
  - Facial paralysis [Recovered/Resolved]

NARRATIVE: CASE EVENT DATE: 2013
